FAERS Safety Report 7261139-9 (Version None)
Quarter: 2011Q1

REPORT INFORMATION
  Report Type: 
  Country: None (occurrence: None)
  Receive Date: 20110130
  Receipt Date: 20100908
  Transmission Date: 20110831
  Serious: No
  Sender: FDA-Public Use
  Company Number: US-ABBOTT-10P-163-0670402-00

PATIENT
  Sex: Female
  Weight: 90.8 kg

DRUGS (2)
  1. HUMIRA [Suspect]
     Indication: RHEUMATOID ARTHRITIS
     Dates: start: 20100801
  2. ADVIL [Concomitant]
     Indication: PAIN
     Dosage: 4-5 TABLETS/DAY

REACTIONS (3)
  - DRUG DOSE OMISSION [None]
  - ARTHRALGIA [None]
  - DEVICE MALFUNCTION [None]
